FAERS Safety Report 19139527 (Version 1)
Quarter: 2021Q2

REPORT INFORMATION
  Report Type: Spontaneous
  Country: US (occurrence: US)
  Receive Date: 20210415
  Receipt Date: 20210415
  Transmission Date: 20210717
  Serious: No
  Sender: FDA-Public Use
  Company Number: None

PATIENT

DRUGS (1)
  1. ETESEVIMAB. [Suspect]
     Active Substance: ETESEVIMAB
     Dosage: ?          OTHER FREQUENCY:ONCE;?
     Route: 042
     Dates: start: 20210413, end: 20210413

REACTIONS (2)
  - Product preparation error [None]
  - Incorrect dose administered [None]

NARRATIVE: CASE EVENT DATE: 20210413
